FAERS Safety Report 9641079 (Version 1)
Quarter: 2013Q4

REPORT INFORMATION
  Report Type: Report from Study
  Country: US (occurrence: US)
  Receive Date: 20131023
  Receipt Date: 20131023
  Transmission Date: 20140711
  Serious: No
  Sender: FDA-Public Use
  Company Number: US-ABBVIE-13P-163-1050441-00

PATIENT
  Age: 27 Year
  Sex: 0
  Weight: 71.73 kg

DRUGS (4)
  1. LUPRON DEPOT [Suspect]
     Indication: ENDOMETRIOSIS
     Route: 030
     Dates: start: 201211
  2. CORGARD [Concomitant]
     Indication: MIGRAINE
  3. DETROL [Concomitant]
     Indication: BLADDER DISORDER
  4. PHENTERMINE [Concomitant]
     Indication: INCREASED APPETITE

REACTIONS (4)
  - Kidney infection [Not Recovered/Not Resolved]
  - Cystitis [Not Recovered/Not Resolved]
  - Muscle spasms [Not Recovered/Not Resolved]
  - Vaginal haemorrhage [Not Recovered/Not Resolved]
